FAERS Safety Report 11185091 (Version 1)
Quarter: 2015Q2

REPORT INFORMATION
  Report Type: Spontaneous
  Country: US (occurrence: None)
  Receive Date: 20150611
  Receipt Date: 20150611
  Transmission Date: 20150821
  Serious: Yes (Other)
  Sender: FDA-Public Use
  Company Number: None

PATIENT
  Age: 51 Year
  Sex: Female
  Weight: 127.01 kg

DRUGS (6)
  1. DULOXETINE DULOXETINE 60MG. [Suspect]
     Active Substance: DULOXETINE
     Indication: ANXIETY
     Route: 048
  2. ATERAX [Concomitant]
     Active Substance: HYDROXYZINE HYDROCHLORIDE
  3. KLONIPIN [Concomitant]
     Active Substance: CLONAZEPAM
  4. WELLBUTRIN [Concomitant]
     Active Substance: BUPROPION HYDROCHLORIDE
  5. DULOXETINE DULOXETINE 60MG. [Suspect]
     Active Substance: DULOXETINE
     Indication: DEPRESSION
     Route: 048
  6. THYROID MED. [Concomitant]

REACTIONS (7)
  - Headache [None]
  - Drug ineffective [None]
  - Product substitution issue [None]
  - Anxiety [None]
  - Crying [None]
  - Mental disorder [None]
  - Suicidal ideation [None]

NARRATIVE: CASE EVENT DATE: 20150610
